FAERS Safety Report 5657305-6 (Version None)
Quarter: 2008Q1

REPORT INFORMATION
  Report Type: 
  Country: None (occurrence: None)
  Receive Date: 20080310
  Receipt Date: 20080303
  Transmission Date: 20080703
  Serious: Yes (Other)
  Sender: FDA-Public Use
  Company Number: A0709118A

PATIENT
  Age: 77 Year
  Sex: Female
  Weight: 76.8 kg

DRUGS (5)
  1. BEXXAR [Suspect]
     Indication: NON-HODGKIN'S LYMPHOMA
     Route: 042
     Dates: start: 20080131, end: 20080131
  2. ATARAX [Concomitant]
  3. TYLENOL (CAPLET) [Concomitant]
  4. BENADRYL [Concomitant]
  5. MEDROL [Concomitant]

REACTIONS (1)
  - RASH GENERALISED [None]
